FAERS Safety Report 22680922 (Version 4)
Quarter: 2024Q2

REPORT INFORMATION
  Report Type: Report from Study
  Country: US (occurrence: US)
  Receive Date: 20230707
  Receipt Date: 20240625
  Transmission Date: 20240716
  Serious: Yes (Other)
  Sender: FDA-Public Use
  Company Number: US-AMNEAL PHARMACEUTICALS-2023-AMRX-02368

PATIENT
  Age: 71 Year
  Sex: Female

DRUGS (3)
  1. CARBIDOPA\LEVODOPA [Suspect]
     Active Substance: CARBIDOPA\LEVODOPA
     Indication: Product used for unknown indication
     Dosage: (36.25/145 MG) 4 CAPSULES BY MOUTH IN THE MORNING, 3 CAPSULES BY MOUTH IN THE AFTERNOON, AND 3 CAPSU
     Route: 048
     Dates: end: 20240315
  2. CARBIDOPA\LEVODOPA [Suspect]
     Active Substance: CARBIDOPA\LEVODOPA
     Dosage: (23.75-95MG) TAKE 4 CAPSULES BY MOUTH IN THE MORNING, TAKE 3 CAPSULES IN THE AFTERNOON AND TAKE 3 CA
     Route: 048
     Dates: start: 20240321
  3. CARBIDOPA\LEVODOPA [Suspect]
     Active Substance: CARBIDOPA\LEVODOPA
     Dosage: (36.25-145MG) 4 CAPS IN THE AM, 3 CAPS IN THE AFTERNOON AND 3 CAPS IN THE EVENING
     Route: 048

REACTIONS (3)
  - Ankle fracture [Unknown]
  - Epilepsy [Unknown]
  - Product use issue [Unknown]

NARRATIVE: CASE EVENT DATE: 20230627
